FAERS Safety Report 16069649 (Version 3)
Quarter: 2019Q2

REPORT INFORMATION
  Report Type: Spontaneous
  Country: ES (occurrence: ES)
  Receive Date: 20190314
  Receipt Date: 20190507
  Transmission Date: 20190711
  Serious: Yes (Other)
  Sender: FDA-Public Use
  Company Number: ES-AMGEN-ESPSP2019038328

PATIENT
  Sex: Female

DRUGS (2)
  1. ENBREL [Suspect]
     Active Substance: ETANERCEPT
     Indication: RHEUMATOID ARTHRITIS
     Dosage: 50 MG, WEEKLY FOR 15 MONTHS
     Route: 065
     Dates: start: 20160620, end: 20170920
  2. METHOTREXATE. [Concomitant]
     Active Substance: METHOTREXATE
     Indication: IMMUNOSUPPRESSANT DRUG THERAPY
     Dosage: 12.5 MG, WEEKLY
     Route: 048
     Dates: start: 201607

REACTIONS (4)
  - Disease recurrence [Recovered/Resolved]
  - Squamous cell carcinoma [Recovered/Resolved]
  - Condition aggravated [Unknown]
  - Lymphadenopathy [Recovered/Resolved]
